FAERS Safety Report 5347367-8 (Version None)
Quarter: 2007Q2

REPORT INFORMATION
  Report Type: 
  Country: None (occurrence: None)
  Receive Date: 20070606
  Receipt Date: 20070529
  Transmission Date: 20071010
  Serious: Yes (Other)
  Sender: FDA-Public Use
  Company Number: US-JNJFOC-20070600092

PATIENT
  Sex: Female
  Weight: 68.04 kg

DRUGS (5)
  1. FENTANYL TRANSDERMAL SYSTEM [Suspect]
     Indication: OSTEOARTHRITIS
     Route: 062
  2. TAGAMET [Concomitant]
     Indication: GASTROINTESTINAL DISORDER
     Route: 048
  3. DIAZEPAM [Concomitant]
     Indication: NERVOUSNESS
     Route: 048
  4. ATENOLOL [Concomitant]
     Indication: BLOOD PRESSURE
     Route: 048
  5. HYDROCODONE BITARTRATE [Concomitant]
     Indication: OSTEOARTHRITIS
     Route: 048

REACTIONS (6)
  - ABDOMINAL DISTENSION [None]
  - DYSPNOEA [None]
  - FEELING ABNORMAL [None]
  - HYPERHIDROSIS [None]
  - NAUSEA [None]
  - VOMITING [None]
